FAERS Safety Report 21368439 (Version 6)
Quarter: 2023Q1

REPORT INFORMATION
  Report Type: Report from Study
  Country: CA (occurrence: CA)
  Receive Date: 20220923
  Receipt Date: 20230119
  Transmission Date: 20230418
  Serious: Yes (Hospitalization, Other)
  Sender: FDA-Public Use
  Company Number: CA-ABBVIE-4128114

PATIENT
  Age: 66 Year
  Sex: Female

DRUGS (1)
  1. RINVOQ [Suspect]
     Active Substance: UPADACITINIB
     Indication: Rheumatoid arthritis
     Dosage: STRENGTH: 15 MG
     Route: 048
     Dates: start: 20200728

REACTIONS (13)
  - Sepsis [Recovered/Resolved]
  - Pneumonia [Recovered/Resolved]
  - Hospitalisation [Recovered/Resolved]
  - Asthenia [Recovered/Resolved]
  - Arthropod bite [Unknown]
  - Cellulitis [Recovered/Resolved]
  - Pneumonia [Unknown]
  - Unevaluable event [Recovered/Resolved]
  - COVID-19 [Recovered/Resolved]
  - Immunodeficiency [Recovered/Resolved]
  - Illness [Recovered/Resolved]
  - Arthropod bite [Recovered/Resolved]
  - Asthenia [Unknown]

NARRATIVE: CASE EVENT DATE: 20220801
